FAERS Safety Report 16458364 (Version 2)
Quarter: 2019Q2

REPORT INFORMATION
  Report Type: Report from Study
  Country: US (occurrence: US)
  Receive Date: 20190620
  Receipt Date: 20190627
  Transmission Date: 20190711
  Serious: No
  Sender: FDA-Public Use
  Company Number: US-BRISTOL-MYERS SQUIBB COMPANY-BMS-2019-060354

PATIENT
  Sex: Female

DRUGS (1)
  1. NIVOLUMAB [Suspect]
     Active Substance: NIVOLUMAB
     Indication: MALIGNANT MELANOMA
     Dosage: UNK, Q4WK
     Route: 042

REACTIONS (7)
  - Sensitive skin [Not Recovered/Not Resolved]
  - Pyrexia [Not Recovered/Not Resolved]
  - Flushing [Not Recovered/Not Resolved]
  - Arthralgia [Not Recovered/Not Resolved]
  - Pain [Not Recovered/Not Resolved]
  - Solar lentigo [Not Recovered/Not Resolved]
  - Pruritus [Not Recovered/Not Resolved]
